FAERS Safety Report 4961899-3 (Version None)
Quarter: 2006Q1

REPORT INFORMATION
  Report Type: 
  Country: None (occurrence: None)
  Receive Date: 20060329
  Receipt Date: 20060323
  Transmission Date: 20060701
  Serious: Yes (Death)
  Sender: FDA-Public Use
  Company Number: MK200512-0320-2

PATIENT
  Age: 25 Year
  Sex: Male

DRUGS (2)
  1. METHADOSE [Suspect]
     Dates: start: 20051209, end: 20051210
  2. ETHANOL [Suspect]
     Dates: start: 20051209, end: 20051210

REACTIONS (6)
  - ALCOHOL USE [None]
  - DRUG TOXICITY [None]
  - HEPATIC STEATOSIS [None]
  - PULMONARY CONGESTION [None]
  - PULMONARY OEDEMA [None]
  - SPLENOMEGALY [None]
